FAERS Safety Report 12459998 (Version 6)
Quarter: 2020Q2

REPORT INFORMATION
  Report Type: Spontaneous
  Country: US (occurrence: US)
  Receive Date: 20160613
  Receipt Date: 20200414
  Transmission Date: 20200713
  Serious: No
  Sender: FDA-Public Use
  Company Number: US-PFIZER INC-2013352965

PATIENT
  Age: 47 Year
  Sex: Female
  Weight: 61 kg

DRUGS (7)
  1. PREMARIN [Suspect]
     Active Substance: ESTROGENS, CONJUGATED
     Indication: ADRENAL INSUFFICIENCY
     Dosage: 2 DF, DAILY (2TABLETS A DAY)
  2. PREMARIN [Suspect]
     Active Substance: ESTROGENS, CONJUGATED
     Indication: BLOOD OESTROGEN DECREASED
     Dosage: 1.25 MG, 2X/DAY
     Route: 048
  3. PREMARIN [Suspect]
     Active Substance: ESTROGENS, CONJUGATED
     Indication: ADDISON^S DISEASE
     Dosage: UNK
     Dates: start: 2000
  4. FLUDROCORTISONE [Concomitant]
     Active Substance: FLUDROCORTISONE
     Indication: ADDISON^S DISEASE
     Dosage: 0.05 MG, 1X/DAY (0.1MG TABLET BY MOUTH, TAKES 1/2 A TABLET, ONCE A DAY)
     Route: 048
     Dates: start: 1995
  5. PREMARIN [Suspect]
     Active Substance: ESTROGENS, CONJUGATED
     Indication: HORMONE LEVEL ABNORMAL
     Dosage: UNK, TWICE A DAY
     Route: 048
     Dates: start: 20160517
  6. HYDROCORTISONE. [Concomitant]
     Active Substance: HYDROCORTISONE
     Indication: ADDISON^S DISEASE
     Dosage: 5 MG, 1X/DAY(10MG TABLET BY MOUTH, TAKES 1/2 TABLET OR 5MG ONCE A DAY)
     Route: 048
     Dates: start: 1995
  7. PREMARIN [Suspect]
     Active Substance: ESTROGENS, CONJUGATED
     Dosage: 1 DF, ALTERNATE DAY (TAKING 1 PREMARIN TABLET EVERY OTHER DAY)

REACTIONS (7)
  - Nausea [Unknown]
  - Weight increased [Unknown]
  - Therapeutic response unexpected [Unknown]
  - Nerve compression [Unknown]
  - Off label use [Unknown]
  - Dizziness [Unknown]
  - Product use in unapproved indication [Unknown]

NARRATIVE: CASE EVENT DATE: 2000
